FAERS Safety Report 5957204-6 (Version None)
Quarter: 2008Q4

REPORT INFORMATION
  Report Type: 
  Country: None (occurrence: None)
  Receive Date: 20081118
  Receipt Date: 20081106
  Transmission Date: 20090506
  Serious: Yes (Hospitalization, Other)
  Sender: FDA-Public Use
  Company Number: JP-PFIZER INC-2008094548

PATIENT
  Age: 77 Year
  Sex: Male

DRUGS (3)
  1. SULFASALAZINE [Suspect]
     Indication: RHEUMATOID ARTHRITIS
     Route: 048
  2. METHOTREXATE [Suspect]
     Indication: RHEUMATOID ARTHRITIS
     Route: 048
  3. D-PENICILLAMINE [Suspect]
     Indication: RHEUMATOID ARTHRITIS
     Route: 048
     Dates: start: 20050101

REACTIONS (2)
  - GLOMERULONEPHRITIS RAPIDLY PROGRESSIVE [None]
  - RENAL IMPAIRMENT [None]
